FAERS Safety Report 6398781-3 (Version None)
Quarter: 2009Q4

REPORT INFORMATION
  Report Type: 
  Country: None (occurrence: None)
  Receive Date: 20091007
  Receipt Date: 20090922
  Transmission Date: 20100525
  Serious: Yes (Death)
  Sender: FDA-Public Use
  Company Number: 1-19913730

PATIENT
  Sex: Female
  Weight: 2 kg

DRUGS (1)
  1. AMMONUL [Suspect]
     Indication: HYPERAMMONAEMIA
     Dosage: INTRAVENOUS
     Route: 042
     Dates: end: 20090901

REACTIONS (4)
  - AMMONIA DECREASED [None]
  - FEEDING DISORDER [None]
  - MULTI-ORGAN FAILURE [None]
  - RENAL IMPAIRMENT [None]
